FAERS Safety Report 8398709-0 (Version None)
Quarter: 2012Q2

REPORT INFORMATION
  Report Type: 
  Country: None (occurrence: None)
  Receive Date: 20120531
  Receipt Date: 20120518
  Transmission Date: 20120825
  Serious: No
  Sender: FDA-Public Use
  Company Number: US-ASTRAZENECA-2012SE32251

PATIENT
  Age: 49 Year
  Sex: Male
  Weight: 81.6 kg

DRUGS (5)
  1. SEROQUEL [Suspect]
     Indication: ANXIETY
     Route: 048
  2. LIBRIUM [Concomitant]
  3. VALIUM [Concomitant]
  4. ATIVAN [Concomitant]
  5. CLONAZEPAM [Concomitant]

REACTIONS (5)
  - HANGOVER [None]
  - INSOMNIA [None]
  - INTENTIONAL DRUG MISUSE [None]
  - FEELING ABNORMAL [None]
  - TACHYPHRENIA [None]
